FAERS Safety Report 18975147 (Version 1)
Quarter: 2021Q1

REPORT INFORMATION
  Report Type: Spontaneous
  Country: US (occurrence: US)
  Receive Date: 20210305
  Receipt Date: 20210305
  Transmission Date: 20210420
  Serious: Yes (Death, Hospitalization)
  Sender: FDA-Public Use
  Company Number: US-OTSUKA-2020_015875

PATIENT
  Age: 94 Year
  Sex: Male

DRUGS (1)
  1. SAMSCA [Suspect]
     Active Substance: TOLVAPTAN
     Indication: HYPONATRAEMIA
     Dosage: 15 MG, UNK
     Route: 065
     Dates: start: 201808

REACTIONS (6)
  - Urinary tract infection [Unknown]
  - Blood sodium decreased [Not Recovered/Not Resolved]
  - Therapy interrupted [Unknown]
  - Pneumonia [Unknown]
  - Death [Fatal]
  - Incorrect product administration duration [Unknown]

NARRATIVE: CASE EVENT DATE: 201808
